FAERS Safety Report 26120316 (Version 1)
Quarter: 2025Q4

REPORT INFORMATION
  Report Type: Spontaneous
  Country: US (occurrence: US)
  Receive Date: 20251204
  Receipt Date: 20251204
  Transmission Date: 20260117
  Serious: Yes (Other)
  Sender: BAXTER
  Company Number: US-MLMSERVICE-20251121-PI721892-00128-1

PATIENT
  Age: 54 Year
  Sex: Male

DRUGS (5)
  1. DOXORUBICIN [Suspect]
     Active Substance: DOXORUBICIN
     Indication: Follicular thyroid cancer
     Dosage: UNK
     Route: 065
  2. DOXORUBICIN [Suspect]
     Active Substance: DOXORUBICIN
     Indication: Metastases to bone
  3. MITOMYCIN C [Suspect]
     Active Substance: MITOMYCIN
     Indication: Follicular thyroid cancer
     Dosage: UNK
     Route: 065
  4. MITOMYCIN C [Suspect]
     Active Substance: MITOMYCIN
     Indication: Metastases to bone
  5. Embozene microspheres [Concomitant]
     Dosage: UNK (EMULSION WITH ENDOTHELIALIZED OIL AND EMBOZENE MICROSPHERES)
     Route: 065

REACTIONS (3)
  - Myelitis transverse [Recovering/Resolving]
  - Hypoaesthesia [Recovering/Resolving]
  - Muscular weakness [Recovering/Resolving]
